FAERS Safety Report 4938804-9 (Version None)
Quarter: 2006Q1

REPORT INFORMATION
  Report Type: 
  Country: None (occurrence: None)
  Receive Date: 20060131
  Receipt Date: 20051213
  Transmission Date: 20060701
  Serious: No
  Sender: FDA-Public Use
  Company Number: 200520412US

PATIENT
  Age: 49 Year
  Sex: Female
  Weight: 55.8 kg

DRUGS (1)
  1. KETEK [Suspect]
     Indication: SINUSITIS
     Dosage: 800 MG QD PO
     Route: 048
     Dates: start: 20051101

REACTIONS (7)
  - CONTUSION [None]
  - CORNEAL ABRASION [None]
  - EYE PAIN [None]
  - EYELID OEDEMA [None]
  - PRURITUS [None]
  - RASH [None]
  - VISION BLURRED [None]
